FAERS Safety Report 5982563-8 (Version None)
Quarter: 2008Q4

REPORT INFORMATION
  Report Type: 
  Country: None (occurrence: None)
  Receive Date: 20081208
  Receipt Date: 20081127
  Transmission Date: 20090506
  Serious: Yes (Hospitalization)
  Sender: FDA-Public Use
  Company Number: PHHY2008CA28383

PATIENT
  Sex: Male

DRUGS (6)
  1. CLOZARIL [Interacting]
     Indication: SCHIZOPHRENIA
     Dosage: UNK
     Dates: start: 20080911, end: 20081031
  2. METHADONE HCL [Suspect]
     Dosage: 35 MG DAILY
  3. RIVOTRIL [Concomitant]
     Dosage: 0.5 MG, QHS
  4. ZYPREXA ZYDIS [Concomitant]
     Dosage: 10 MG, BID, PRN
  5. COCAINE [Suspect]
  6. CANNABIS [Suspect]

REACTIONS (7)
  - AGGRESSION [None]
  - AGITATION [None]
  - DRUG INTERACTION [None]
  - FALL [None]
  - HEAD INJURY [None]
  - INCOHERENT [None]
  - LOSS OF CONSCIOUSNESS [None]
